FAERS Safety Report 13591219 (Version 1)
Quarter: 2017Q2

REPORT INFORMATION
  Report Type: Spontaneous
  Country: PL (occurrence: PL)
  Receive Date: 20170529
  Receipt Date: 20170529
  Transmission Date: 20170830
  Serious: Yes (Other)
  Sender: FDA-Public Use
  Company Number: PL-TEVA-771759ACC

PATIENT
  Age: 66 Year
  Sex: Female
  Weight: 40 kg

DRUGS (2)
  1. CISPLATIN. [Suspect]
     Active Substance: CISPLATIN
     Route: 042
     Dates: start: 20170320
  2. VINORELBINE [Suspect]
     Active Substance: VINORELBINE\VINORELBINE TARTRATE
     Route: 042
     Dates: start: 20170320

REACTIONS (2)
  - Neutropenia [Unknown]
  - Granulocyte count [Unknown]

NARRATIVE: CASE EVENT DATE: 20170420
